FAERS Safety Report 10802112 (Version 1)
Quarter: 2015Q1

REPORT INFORMATION
  Report Type: Spontaneous
  Country: US (occurrence: US)
  Receive Date: 20150217
  Receipt Date: 20150217
  Transmission Date: 20150721
  Serious: No
  Sender: FDA-Public Use
  Company Number: US-ASTRAZENECA-2015SE13399

PATIENT
  Age: 42 Year
  Sex: Female
  Weight: 47.6 kg

DRUGS (10)
  1. AMLODIPINE (GENERIC NORVASC) [Concomitant]
     Indication: BLOOD PRESSURE ABNORMAL
     Route: 048
     Dates: start: 2000
  2. BURTALCAP/ CODEINE [Concomitant]
     Indication: HEADACHE
     Route: 048
  3. SEROQUEL [Suspect]
     Active Substance: QUETIAPINE FUMARATE
     Indication: SLEEP DISORDER
     Dosage: EVERY DAY
     Route: 048
     Dates: start: 2009, end: 201401
  4. TEMAZAPAM [Concomitant]
     Indication: NERVOUS SYSTEM DISORDER
     Route: 048
     Dates: start: 1999, end: 201401
  5. SEROQUEL [Suspect]
     Active Substance: QUETIAPINE FUMARATE
     Indication: SLEEP DISORDER
     Dosage: TWO TIMES A DAY
     Route: 048
     Dates: start: 2002, end: 2009
  6. SEROQUEL [Suspect]
     Active Substance: QUETIAPINE FUMARATE
     Indication: SCHIZOPHRENIA
     Dosage: EVERY DAY
     Route: 048
     Dates: start: 2009, end: 201401
  7. SEROQUEL [Suspect]
     Active Substance: QUETIAPINE FUMARATE
     Indication: SCHIZOPHRENIA
     Dosage: TWO TIMES A DAY
     Route: 048
     Dates: start: 2002, end: 2009
  8. SEROQUEL [Suspect]
     Active Substance: QUETIAPINE FUMARATE
     Indication: BIPOLAR DISORDER
     Dosage: TWO TIMES A DAY
     Route: 048
     Dates: start: 2002, end: 2009
  9. VISCEROL [Concomitant]
     Indication: BLOOD PRESSURE ABNORMAL
     Route: 048
     Dates: start: 2000
  10. SEROQUEL [Suspect]
     Active Substance: QUETIAPINE FUMARATE
     Indication: BIPOLAR DISORDER
     Dosage: EVERY DAY
     Route: 048
     Dates: start: 2009, end: 201401

REACTIONS (4)
  - Hypoaesthesia oral [Unknown]
  - Nerve injury [Unknown]
  - Tongue disorder [Unknown]
  - Dysarthria [Unknown]

NARRATIVE: CASE EVENT DATE: 2002
